FAERS Safety Report 6553457-4 (Version None)
Quarter: 2010Q1

REPORT INFORMATION
  Report Type: 
  Country: None (occurrence: None)
  Receive Date: 20100122
  Receipt Date: 20100106
  Transmission Date: 20100710
  Serious: Yes (Hospitalization)
  Sender: FDA-Public Use
  Company Number: 2010AC000040

PATIENT
  Age: 56 Year
  Sex: Male

DRUGS (9)
  1. DIGOXIN [Suspect]
  2. EFFEXOR [Concomitant]
  3. CARDIZEM [Concomitant]
  4. ECOTRIN [Concomitant]
  5. ZOCOR [Concomitant]
  6. PERI-COLACE [Concomitant]
  7. PEPCID [Concomitant]
  8. PERCOCET [Concomitant]
  9. CELEBREX [Concomitant]

REACTIONS (10)
  - ANGINA UNSTABLE [None]
  - ARTHRALGIA [None]
  - ECONOMIC PROBLEM [None]
  - EMOTIONAL DISORDER [None]
  - HAEMATOCRIT DECREASED [None]
  - HAEMOGLOBIN DECREASED [None]
  - KNEE ARTHROPLASTY [None]
  - MULTIPLE INJURIES [None]
  - PAIN [None]
  - PROCEDURAL PAIN [None]
